FAERS Safety Report 24551607 (Version 2)
Quarter: 2025Q3

REPORT INFORMATION
  Report Type: Spontaneous
  Country: EU (occurrence: EU)
  Receive Date: 20241026
  Receipt Date: 20250809
  Transmission Date: 20251021
  Serious: Yes (Life-Threatening, Other)
  Sender: ALEXION PHARMACEUTICALS
  Company Number: EU-AstraZeneca-CH-00725618A

PATIENT
  Age: 64 Year
  Sex: Male
  Weight: 76 kg

DRUGS (1)
  1. TREMELIMUMAB [Suspect]
     Active Substance: TREMELIMUMAB
     Indication: Lung neoplasm malignant
     Dates: start: 20240926, end: 20241002

REACTIONS (3)
  - Diabetes mellitus [Unknown]
  - Hyperglycaemia [Unknown]
  - Ketoacidosis [Unknown]

NARRATIVE: CASE EVENT DATE: 20241011
